FAERS Safety Report 7379729-1 (Version None)
Quarter: 2011Q1

REPORT INFORMATION
  Report Type: 
  Country: None (occurrence: None)
  Receive Date: 20110329
  Receipt Date: 20110323
  Transmission Date: 20110831
  Serious: Yes (Other)
  Sender: FDA-Public Use
  Company Number: US-PFIZER INC-2011065586

PATIENT
  Sex: Male

DRUGS (3)
  1. METFORMIN [Concomitant]
     Indication: DIABETES MELLITUS
     Dosage: UNK
  2. METOPROLOL [Concomitant]
     Dosage: UNK
  3. AMLODIPINE BESYLATE [Suspect]
     Dosage: 5 MG, UNK
     Dates: start: 20110315

REACTIONS (2)
  - OEDEMA [None]
  - BLOOD PRESSURE INCREASED [None]
